FAERS Safety Report 13542892 (Version 1)
Quarter: 2017Q2

REPORT INFORMATION
  Report Type: Spontaneous
  Country: SE (occurrence: SE)
  Receive Date: 20170513
  Receipt Date: 20170513
  Transmission Date: 20170830
  Serious: Yes (Hospitalization)
  Sender: FDA-Public Use
  Company Number: SE-BAXTER-2017BAX019995

PATIENT
  Age: 48 Year
  Sex: Female

DRUGS (12)
  1. ZOPIKLON [Suspect]
     Active Substance: ZOPICLONE
     Indication: PRODUCT USED FOR UNKNOWN INDICATION
     Route: 065
     Dates: start: 20170329, end: 20170330
  2. UROMITEXAN 100 MG/ML INJEKTIONSV?TSKA, L?SNING [Suspect]
     Active Substance: MESNA
     Dosage: DOSE REINTRODUCED
     Route: 042
  3. IFOSFAMIDE FOR INJECTION [Suspect]
     Active Substance: IFOSFAMIDE
     Indication: PHYLLODES TUMOUR
     Route: 065
  4. DOXORUBICIN [Suspect]
     Active Substance: DOXORUBICIN
     Indication: PRODUCT USED FOR UNKNOWN INDICATION
     Route: 065
     Dates: start: 20170328, end: 20170328
  5. LAXIRIVA [Suspect]
     Active Substance: POLYETHYLENE GLYCOL 3350\POTASSIUM CHLORIDE\SODIUM BICARBONATE\SODIUM CHLORIDE
     Indication: PRODUCT USED FOR UNKNOWN INDICATION
     Route: 065
     Dates: start: 20170328
  6. UROMITEXAN 100 MG/ML INJEKTIONSV?TSKA, L?SNING [Suspect]
     Active Substance: MESNA
     Indication: SARCOMA
     Dosage: DAY 2
     Route: 042
     Dates: start: 20170329, end: 20170329
  7. CILAXORAL [Suspect]
     Active Substance: SODIUM PICOSULFATE
     Indication: PRODUCT USED FOR UNKNOWN INDICATION
     Dosage: FORMULATION : DROPS
     Route: 065
     Dates: start: 20170328
  8. IFOSFAMIDE FOR INJECTION [Suspect]
     Active Substance: IFOSFAMIDE
     Indication: SARCOMA
     Route: 065
     Dates: start: 20170329
  9. BETAPRED [Suspect]
     Active Substance: BETAMETHASONE SODIUM PHOSPHATE
     Indication: PRODUCT USED FOR UNKNOWN INDICATION
     Route: 065
     Dates: start: 20170328, end: 20170403
  10. DESLORATADIN [Concomitant]
     Active Substance: DESLORATADINE
     Indication: PRODUCT USED FOR UNKNOWN INDICATION
     Route: 065
     Dates: start: 20170330, end: 20170403
  11. UROMITEXAN 100 MG/ML INJEKTIONSV?TSKA, L?SNING [Suspect]
     Active Substance: MESNA
     Indication: PHYLLODES TUMOUR
     Dosage: INFUSION
     Route: 042
     Dates: start: 20170328
  12. TAVEGYL [Suspect]
     Active Substance: CLEMASTINE FUMARATE
     Indication: PRODUCT USED FOR UNKNOWN INDICATION
     Route: 065
     Dates: start: 20170329, end: 20170329

REACTIONS (3)
  - Eye swelling [Recovered/Resolved]
  - Flushing [Unknown]
  - Erythema [Recovered/Resolved]

NARRATIVE: CASE EVENT DATE: 20170329
